FAERS Safety Report 7805364-4 (Version None)
Quarter: 2011Q4

REPORT INFORMATION
  Report Type: 
  Country: None (occurrence: None)
  Receive Date: 20111010
  Receipt Date: 20110930
  Transmission Date: 20120403
  Serious: Yes (Other)
  Sender: FDA-Public Use
  Company Number: ES-ASTRAZENECA-2011SE59242

PATIENT
  Age: 50 Year
  Sex: Male

DRUGS (5)
  1. CANCIDAS [Suspect]
     Indication: FEBRILE NEUTROPENIA
     Route: 042
     Dates: start: 20110410, end: 20110420
  2. MEROPENEM [Suspect]
     Route: 042
     Dates: start: 20110323, end: 20110422
  3. AMIKACIN [Suspect]
     Route: 042
     Dates: start: 20110417, end: 20110420
  4. TARGOCID [Suspect]
     Route: 042
     Dates: start: 20110408, end: 20110415
  5. ACYCLOVIR [Suspect]
     Route: 042
     Dates: start: 20110413, end: 20110417

REACTIONS (2)
  - TRANSAMINASES INCREASED [None]
  - HEPATOTOXICITY [None]
